FAERS Safety Report 24794139 (Version 4)
Quarter: 2025Q3

REPORT INFORMATION
  Report Type: Spontaneous
  Country: US (occurrence: US)
  Receive Date: 20241231
  Receipt Date: 20250812
  Transmission Date: 20251020
  Serious: Yes (Other)
  Sender: BRISTOL-MYERS SQUIBB COMPANY
  Company Number: US-BRISTOL-MYERS SQUIBB COMPANY-2024-201277

PATIENT
  Age: 62 Year
  Sex: Male

DRUGS (1)
  1. POMALYST [Suspect]
     Active Substance: POMALIDOMIDE
     Indication: Plasma cell myeloma in remission
     Dosage: QD/DAILY
     Route: 048

REACTIONS (12)
  - Joint stiffness [Unknown]
  - Hot flush [Unknown]
  - Diarrhoea [Unknown]
  - Neuropathy peripheral [Unknown]
  - Dry skin [Unknown]
  - Nausea [Unknown]
  - Constipation [Unknown]
  - Nasopharyngitis [Unknown]
  - Fatigue [Unknown]
  - Dry mouth [Unknown]
  - Arthralgia [Unknown]
  - Disturbance in attention [Unknown]
